FAERS Safety Report 8678724 (Version 2)
Quarter: 2012Q4

REPORT INFORMATION
  Report Type: 
  Country: JP (occurrence: JP)
  Receive Date: 20120723
  Receipt Date: 20121114
  Transmission Date: 20130627
  Serious: Yes (Other)
  Sender: FDA-Public Use
  Company Number: JP-BAYER-2012-070834

PATIENT
  Age: 63 Year
  Sex: Male
  Weight: 58 kg

DRUGS (9)
  1. NEXAVAR [Suspect]
     Indication: CARCINOMA HEPATOCELLULAR
     Dosage: 400 mg, BID
     Route: 048
     Dates: start: 20120619, end: 20120703
  2. NEXAVAR [Suspect]
     Indication: CARCINOMA HEPATOCELLULAR
     Dosage: 400mg daily
     Route: 048
     Dates: start: 20120828, end: 20121018
  3. NEXAVAR [Suspect]
     Indication: CARCINOMA HEPATOCELLULAR
     Dosage: 600mg daily
     Route: 048
     Dates: start: 20121019
  4. PARIET [Concomitant]
     Dosage: Daily dose 10 mg
     Route: 048
     Dates: start: 20120619
  5. NORVASC [Concomitant]
     Indication: HYPERTENSION
     Dosage: Daily dose 5 mg
     Route: 048
     Dates: start: 20120619
  6. ZYLORIC [Concomitant]
     Indication: URIC ACID LEVEL INCREASED
     Dosage: Daily dose 100 mg
     Route: 048
     Dates: start: 20120619
  7. CRESTOR [Concomitant]
     Indication: HYPERLIPIDAEMIA
     Dosage: Daily dose 2.5 mg
     Route: 048
     Dates: start: 20120619
  8. CELECOXIB [Concomitant]
     Indication: PAIN RELIEF
     Dosage: Daily dose 200 mg
     Route: 048
     Dates: start: 20120619
  9. MUCOSTA [Concomitant]
     Dosage: Daily dose 200 mg
     Route: 048
     Dates: start: 20120619

REACTIONS (2)
  - Deafness neurosensory [Recovering/Resolving]
  - Rash [Recovering/Resolving]
